FAERS Safety Report 8142731-6 (Version None)
Quarter: 2012Q1

REPORT INFORMATION
  Report Type: 
  Country: None (occurrence: None)
  Receive Date: 20120216
  Receipt Date: 20120210
  Transmission Date: 20120608
  Serious: Yes (Life-Threatening)
  Sender: FDA-Public Use
  Company Number: GB-ABBOTT-12P-167-0900120-00

PATIENT
  Age: 57 Year
  Sex: Female
  Weight: 37 kg

DRUGS (7)
  1. LACTATE [Concomitant]
     Indication: CONTINUOUS HAEMODIAFILTRATION
     Dosage: 20MMOL/L
  2. COMBIVIR [Suspect]
     Indication: HIV INFECTION
     Route: 048
     Dates: start: 20111219, end: 20120105
  3. COTRIM [Concomitant]
     Indication: CD4 LYMPHOCYTES DECREASED
     Route: 048
     Dates: start: 20111219, end: 20120105
  4. NORVIR [Suspect]
     Indication: HIV INFECTION
     Route: 048
     Dates: start: 20111219, end: 20120105
  5. DEXTROSE [Concomitant]
     Indication: HYPOGLYCAEMIA
     Dosage: 50MLS 50% GLUCOSE/HOUR
  6. LACTATE [Concomitant]
     Indication: MYOCARDIAL ISCHAEMIA
  7. DARUNAVIR [Suspect]
     Indication: HIV INFECTION
     Route: 048
     Dates: start: 20111219, end: 20120105

REACTIONS (1)
  - MITOCHONDRIAL CYTOPATHY [None]
